FAERS Safety Report 8241377-9 (Version None)
Quarter: 2012Q1

REPORT INFORMATION
  Report Type: 
  Country: None (occurrence: None)
  Receive Date: 20120328
  Receipt Date: 20120319
  Transmission Date: 20120608
  Serious: Yes (Hospitalization)
  Sender: FDA-Public Use
  Company Number: PHHO2012FR003755

PATIENT
  Sex: Female

DRUGS (6)
  1. METHOTREXATE [Suspect]
     Indication: BONE SARCOMA
     Dosage: 20.75 G, UNK
     Dates: start: 20111126, end: 20111212
  2. NO TREATMENT RECEIVED [Suspect]
     Indication: BONE SARCOMA
     Dosage: NO TREATMENT RECEIVED
  3. ETOPOSIDE [Suspect]
     Indication: BONE SARCOMA
     Dosage: 520 MG, UNK
     Dates: start: 20111116, end: 20111221
  4. IFOSFAMIDE [Suspect]
     Dosage: 6.05 MG, UNK
     Dates: start: 20111229
  5. IFOSFAMIDE [Suspect]
     Dosage: NO TREATMENT RECEIVED
     Dates: start: 20111222, end: 20111228
  6. IFOSFAMIDE [Suspect]
     Indication: BONE SARCOMA
     Dosage: 12.1 G, UNK
     Dates: start: 20111219, end: 20111221

REACTIONS (2)
  - ENCEPHALOPATHY [None]
  - FEMUR FRACTURE [None]
